FAERS Safety Report 23022706 (Version 2)
Quarter: 2024Q1

REPORT INFORMATION
  Report Type: Report from Study
  Country: EG (occurrence: EG)
  Receive Date: 20231003
  Receipt Date: 20240220
  Transmission Date: 20240410
  Serious: Yes (Other)
  Sender: FDA-Public Use
  Company Number: EG-SANDOZ-SDZ2023EG034886

PATIENT
  Age: 5 Year
  Sex: Male
  Weight: 15.6 kg

DRUGS (9)
  1. OMNITROPE [Suspect]
     Active Substance: SOMATROPIN
     Indication: Growth hormone deficiency
     Dosage: 0.5 MG, QD
     Route: 058
     Dates: start: 202309
  2. OMNITROPE [Suspect]
     Active Substance: SOMATROPIN
     Dosage: 0.6 MG
     Route: 058
     Dates: start: 20230919
  3. AUGMENTIN [Concomitant]
     Active Substance: AMOXICILLIN\CLAVULANATE POTASSIUM
     Indication: Otitis media
     Dosage: 5CM
     Route: 048
     Dates: start: 20230921
  4. Decapreno [Concomitant]
     Indication: Nutritional supplementation
     Dosage: UNK AMPOULE EVERY 3 MOTHS (SHE PUT IT IN JUICE
     Route: 048
     Dates: start: 202304
  5. Limitless lactoferrin [Concomitant]
     Indication: Supplementation therapy
     Dosage: 5CM
     Route: 048
     Dates: start: 202304
  6. NASACORT [Concomitant]
     Active Substance: TRIAMCINOLONE ACETONIDE
     Indication: Otitis media
     Dosage: 1 SPRAY/NOSTRIL
     Route: 045
     Dates: start: 20230921
  7. SOMATROPIN [Concomitant]
     Active Substance: SOMATROPIN
     Indication: Growth hormone deficiency
     Dosage: 40 IU INCREASED TO 50 IU, TILL FEB
     Route: 058
  8. FEXOFENADINE [Concomitant]
     Active Substance: FEXOFENADINE HYDROCHLORIDE
     Indication: Otitis media
     Dosage: 5 CM
     Route: 048
     Dates: start: 20230921
  9. ZINC [Concomitant]
     Active Substance: PYRITHIONE ZINC\ZINC\ZINC CHLORIDE
     Indication: Nutritional supplementation
     Dosage: 5 CM
     Route: 048
     Dates: start: 202304

REACTIONS (7)
  - Injection site pain [Not Recovered/Not Resolved]
  - Otitis media [Not Recovered/Not Resolved]
  - Wrong technique in product usage process [Not Recovered/Not Resolved]
  - Product dose omission issue [Recovered/Resolved]
  - Extra dose administered [Recovered/Resolved]
  - Underdose [Unknown]
  - Product availability issue [Unknown]

NARRATIVE: CASE EVENT DATE: 20230901
